FAERS Safety Report 15750060 (Version 1)
Quarter: 2018Q4

REPORT INFORMATION
  Report Type: Spontaneous
  Country: IN (occurrence: IN)
  Receive Date: 20181221
  Receipt Date: 20181221
  Transmission Date: 20190205
  Serious: Yes (Death, Hospitalization, Other)
  Sender: FDA-Public Use
  Company Number: IN-BAYER-2018-236920

PATIENT
  Age: 52 Year
  Sex: Male

DRUGS (1)
  1. SORAFENIB (RAF KINASE INHIBITOR) [Suspect]
     Active Substance: SORAFENIB
     Indication: HEPATOCELLULAR CARCINOMA

REACTIONS (10)
  - General physical health deterioration [None]
  - Abdominal pain [None]
  - Blood phosphorus increased [None]
  - Hypocalcaemia [None]
  - Tumour lysis syndrome [None]
  - Sepsis [Fatal]
  - Blood potassium increased [None]
  - Blood uric acid increased [None]
  - Urine output increased [None]
  - Acute kidney injury [None]
